FAERS Safety Report 8535203-8 (Version None)
Quarter: 2012Q3

REPORT INFORMATION
  Report Type: 
  Country: None (occurrence: None)
  Receive Date: 20120724
  Receipt Date: 20120626
  Transmission Date: 20120928
  Serious: No
  Sender: FDA-Public Use
  Company Number: US-009507513-1207USA004255

PATIENT

DRUGS (3)
  1. CLONIDINE [Concomitant]
     Dosage: UNK
  2. TIMOPTIC-XE [Suspect]
     Indication: INTRAOCULAR PRESSURE INCREASED
     Dosage: UNK, HS
     Route: 047
     Dates: start: 20120401, end: 20120624
  3. CHLORTHALIDONE [Concomitant]
     Dosage: UNK

REACTIONS (2)
  - APPLICATION SITE IRRITATION [None]
  - EYE BURNS [None]
